FAERS Safety Report 13142590 (Version 3)
Quarter: 2018Q2

REPORT INFORMATION
  Report Type: Spontaneous
  Country: US (occurrence: US)
  Receive Date: 20170124
  Receipt Date: 20180615
  Transmission Date: 20180711
  Serious: No
  Sender: FDA-Public Use
  Company Number: US-JNJFOC-20161216244

PATIENT
  Age: 59 Year
  Sex: Female
  Weight: 52.62 kg

DRUGS (5)
  1. FENTANYL TRANSDERMAL SYSTEM [Suspect]
     Active Substance: FENTANYL
     Indication: OSTEOARTHRITIS
     Dosage: INITIATED ON AN UNSPECIFIED DATE AROUND 2010 OR 2011
     Route: 062
  2. OMEPRAZOLE. [Concomitant]
     Active Substance: OMEPRAZOLE
     Indication: GASTROOESOPHAGEAL REFLUX DISEASE
     Route: 048
  3. PERCOCET [Concomitant]
     Active Substance: ACETAMINOPHEN\OXYCODONE HYDROCHLORIDE
     Indication: BREAKTHROUGH PAIN
     Dosage: 3/25
     Route: 065
  4. TYLENOL [Concomitant]
     Active Substance: ACETAMINOPHEN
     Indication: BREAKTHROUGH PAIN
     Route: 065
  5. FENTANYL TRANSDERMAL SYSTEM [Suspect]
     Active Substance: FENTANYL
     Indication: FIBROMYALGIA
     Dosage: INITIATED ON AN UNSPECIFIED DATE AROUND 2010 OR 2011
     Route: 062

REACTIONS (8)
  - Fibromyalgia [Unknown]
  - Drug ineffective [Unknown]
  - Incorrect drug administration duration [Unknown]
  - Device leakage [Unknown]
  - Back pain [Unknown]
  - Weight fluctuation [Unknown]
  - Product availability issue [Unknown]
  - Condition aggravated [Unknown]

NARRATIVE: CASE EVENT DATE: 20161125
